FAERS Safety Report 5731519-9 (Version None)
Quarter: 2008Q2

REPORT INFORMATION
  Report Type: 
  Country: None (occurrence: None)
  Receive Date: 20080506
  Receipt Date: 20080506
  Transmission Date: 20081010
  Serious: Yes (Life-Threatening, Other)
  Sender: FDA-Public Use
  Company Number: None

PATIENT
  Sex: Female
  Weight: 48.5349 kg

DRUGS (1)
  1. DIGITEK 0.125 MG BERTEK [Suspect]
     Indication: CARDIOMYOPATHY
     Dosage: 0.125 MG ONE DAILY PO
     Route: 048
     Dates: start: 20070901, end: 20080124

REACTIONS (7)
  - ABNORMAL BEHAVIOUR [None]
  - BLOOD CALCIUM INCREASED [None]
  - CARDIAC FAILURE CONGESTIVE [None]
  - FEELING JITTERY [None]
  - HALLUCINATION [None]
  - MUSCLE SPASMS [None]
  - MUSCLE TWITCHING [None]
